FAERS Safety Report 5256097-2 (Version None)
Quarter: 2007Q1

REPORT INFORMATION
  Report Type: 
  Country: None (occurrence: None)
  Receive Date: 20070306
  Receipt Date: 20070223
  Transmission Date: 20070707
  Serious: Yes (Hospitalization)
  Sender: FDA-Public Use
  Company Number: JP-BAYER-200710102BYL

PATIENT
  Age: 88 Year
  Sex: Male

DRUGS (1)
  1. CIPROXAN-I.V.300 [Suspect]
     Indication: PNEUMONIA
     Dosage: UNIT DOSE: 300 MG
     Route: 042
     Dates: start: 20070127, end: 20070130

REACTIONS (1)
  - INTERSTITIAL LUNG DISEASE [None]
